FAERS Safety Report 7953452-4 (Version None)
Quarter: 2011Q4

REPORT INFORMATION
  Report Type: 
  Country: None (occurrence: None)
  Receive Date: 20111202
  Receipt Date: 20111129
  Transmission Date: 20120403
  Serious: Yes (Other)
  Sender: FDA-Public Use
  Company Number: US-PFIZER INC-2011290412

PATIENT
  Sex: Female
  Weight: 98.413 kg

DRUGS (3)
  1. LYRICA [Suspect]
     Indication: NEURALGIA
     Dosage: 25 MG, 3X/DAY
     Route: 048
     Dates: start: 20110830, end: 20110101
  2. LYRICA [Suspect]
     Dosage: 75 MG, 3X/DAY
     Route: 048
     Dates: start: 20110101, end: 20111125
  3. TOPROL-XL [Concomitant]
     Dosage: 50 MG, 1X/DAY

REACTIONS (4)
  - NASAL CONGESTION [None]
  - DIARRHOEA [None]
  - SWOLLEN TONGUE [None]
  - DRY MOUTH [None]
